FAERS Safety Report 4818618-0 (Version None)
Quarter: 2005Q4

REPORT INFORMATION
  Report Type: 
  Country: None (occurrence: None)
  Receive Date: 20051101
  Receipt Date: 20051024
  Transmission Date: 20060501
  Serious: Yes (Other)
  Sender: FDA-Public Use
  Company Number: 163-20785-05100370

PATIENT
  Age: 46 Year
  Sex: Female

DRUGS (7)
  1. THALOMID [Suspect]
     Indication: MULTIPLE MYELOMA
     Dosage: SEE IMAGE
     Route: 048
     Dates: start: 20040709, end: 20040715
  2. THALOMID [Suspect]
     Indication: MULTIPLE MYELOMA
     Dosage: SEE IMAGE
     Route: 048
     Dates: start: 20040716, end: 20040722
  3. THALOMID [Suspect]
     Indication: MULTIPLE MYELOMA
     Dosage: SEE IMAGE
     Route: 048
     Dates: start: 20040723, end: 20040928
  4. DECADRON [Concomitant]
  5. COUMADIN [Concomitant]
  6. ZOMETA [Concomitant]
  7. PROCRIT [Concomitant]

REACTIONS (3)
  - OSTEOPOROTIC FRACTURE [None]
  - OVARIAN CYST [None]
  - SPINAL COMPRESSION FRACTURE [None]
